FAERS Safety Report 9162639 (Version 1)
Quarter: 2013Q1

REPORT INFORMATION
  Report Type: Spontaneous
  Country: DK (occurrence: None)
  Receive Date: 20130204
  Receipt Date: 20130204
  Transmission Date: 20140127
  Serious: Yes (Other)
  Sender: FDA-Public Use
  Company Number: 2013MA000714

PATIENT
  Age: 57 Year
  Sex: Male

DRUGS (10)
  1. DOXAZOSIN MESYLATE [Suspect]
     Indication: HYPERTENSION
     Route: 048
     Dates: start: 20121212, end: 20130101
  2. MODAFINIL [Concomitant]
  3. OMEPRAZOLE [Concomitant]
  4. ROPINIROLE [Concomitant]
  5. TRAMADOL [Concomitant]
  6. AMLODIPINE [Concomitant]
  7. BENDROFLUMETHIAZIDE [Concomitant]
  8. DULOXETINE [Concomitant]
  9. PYBOGEL [Concomitant]
  10. LISINOPRIL [Concomitant]

REACTIONS (1)
  - Depression suicidal [None]
